FAERS Safety Report 6335434-1 (Version None)
Quarter: 2009Q3

REPORT INFORMATION
  Report Type: 
  Country: None (occurrence: None)
  Receive Date: 20090831
  Receipt Date: 20090820
  Transmission Date: 20100115
  Serious: Yes (Other)
  Sender: FDA-Public Use
  Company Number: US-ASTRAZENECA-2009UW12978

PATIENT
  Age: 58 Year
  Sex: Female
  Weight: 73.5 kg

DRUGS (1)
  1. CRESTOR [Suspect]
     Indication: BLOOD CHOLESTEROL INCREASED
     Route: 048
     Dates: start: 20080408, end: 20090319

REACTIONS (3)
  - AMNESIA [None]
  - HYPOAESTHESIA [None]
  - NERVE COMPRESSION [None]
